FAERS Safety Report 5085698-X (Version None)
Quarter: 2006Q3

REPORT INFORMATION
  Report Type: 
  Country: None (occurrence: None)
  Receive Date: 20060822
  Receipt Date: 20060718
  Transmission Date: 20061208
  Serious: Yes (Disabling)
  Sender: FDA-Public Use
  Company Number: GB-ROCHE-457038

PATIENT
  Age: 36 Year
  Sex: Female
  Weight: 50 kg

DRUGS (5)
  1. ACCUTANE [Suspect]
     Indication: ACNE
     Route: 048
     Dates: start: 20060303, end: 20060308
  2. ACCUTANE [Suspect]
     Route: 048
     Dates: start: 20060309, end: 20060310
  3. DIANETTE [Concomitant]
     Indication: ACNE
     Route: 048
  4. CYPROTERONE [Concomitant]
     Indication: ACNE
  5. THYROXINE [Concomitant]
     Indication: HYPOTHYROIDISM
     Route: 048

REACTIONS (3)
  - CHRONIC FATIGUE SYNDROME [None]
  - FATIGUE [None]
  - ILL-DEFINED DISORDER [None]
